FAERS Safety Report 8399032-0 (Version None)
Quarter: 2012Q2

REPORT INFORMATION
  Report Type: 
  Country: None (occurrence: None)
  Receive Date: 20120531
  Receipt Date: 20120522
  Transmission Date: 20120825
  Serious: Yes (Other)
  Sender: FDA-Public Use
  Company Number: US-ELI_LILLY_AND_COMPANY-US201205008123

PATIENT
  Sex: Female
  Weight: 111.11 kg

DRUGS (5)
  1. TYVASO [Concomitant]
     Indication: PULMONARY ARTERIAL HYPERTENSION
     Dosage: 12 DF, QID
     Route: 055
     Dates: start: 20090902
  2. COUMADIN [Concomitant]
  3. TRACLEER [Concomitant]
  4. DIURETICS [Concomitant]
  5. ADCIRCA [Suspect]
     Dosage: UNK, UNKNOWN
     Route: 065

REACTIONS (6)
  - SYNCOPE [None]
  - SINUSITIS [None]
  - PAIN IN JAW [None]
  - FLUSHING [None]
  - MYALGIA [None]
  - BLOOD POTASSIUM DECREASED [None]
